FAERS Safety Report 14955113 (Version 1)
Quarter: 2018Q2

REPORT INFORMATION
  Report Type: Spontaneous
  Country: GB (occurrence: GB)
  Receive Date: 20180531
  Receipt Date: 20180531
  Transmission Date: 20180711
  Serious: Yes (Hospitalization, Other)
  Sender: FDA-Public Use
  Company Number: GB-BRISTOL-MYERS SQUIBB COMPANY-BMS-2018-046634

PATIENT
  Age: 61 Year
  Sex: Male

DRUGS (1)
  1. NIVOLUMAB [Suspect]
     Active Substance: NIVOLUMAB
     Indication: CLEAR CELL RENAL CELL CARCINOMA
     Dosage: 3 MG/KG - 230 MG
     Route: 065
     Dates: start: 201705

REACTIONS (9)
  - Abdominal pain [Unknown]
  - Cholecystitis acute [Unknown]
  - Lymphangitis [Unknown]
  - Jaundice cholestatic [Unknown]
  - Malignant neoplasm progression [Unknown]
  - Immune-mediated hepatitis [Unknown]
  - Pleural effusion [Unknown]
  - Lymphadenopathy [Unknown]
  - Vomiting [Unknown]

NARRATIVE: CASE EVENT DATE: 20180126
